FAERS Safety Report 23919388 (Version 1)
Quarter: 2024Q2

REPORT INFORMATION
  Report Type: Report from Study
  Country: US (occurrence: US)
  Receive Date: 20240530
  Receipt Date: 20240530
  Transmission Date: 20240716
  Serious: Yes (Death)
  Sender: FDA-Public Use
  Company Number: US-PFIZER INC-PV202400070152

PATIENT
  Age: 21 Month
  Sex: Female

DRUGS (5)
  1. MITOXANTRONE HYDROCHLORIDE [Suspect]
     Active Substance: MITOXANTRONE HYDROCHLORIDE
     Indication: Acute lymphocytic leukaemia
     Dosage: 10 MG/M2/DOSE ONCE DAILY ON DAYS 1 AND 2
     Route: 042
  2. METHOTREXATE SODIUM [Suspect]
     Active Substance: METHOTREXATE SODIUM
     Indication: Acute lymphocytic leukaemia
     Dosage: (DOSED BY AGE) WAS GIVEN AT DAYS 1, 8, AND 29
     Route: 037
  3. BORTEZOMIB [Suspect]
     Active Substance: BORTEZOMIB
     Indication: Acute lymphocytic leukaemia
     Dosage: PUSH OVER 3 TO 5 SECONDS, AT 1.3 MG/M2/DOSE ONCE DAILY ON DAYS 1, 4, 8, AND 11 (MAX. 3.5 MG/DOSE)
     Route: 042
  4. VINORELBINE [Suspect]
     Active Substance: VINORELBINE TARTRATE
     Indication: Acute lymphocytic leukaemia
     Dosage: INTRAVENOUSLY OVER 10 MINUTES, AT A DOSE OF 25 MG/M2/DOSE ONCE DAILY, ON DAYS 3, 10, AND 17
     Route: 042
  5. DEXAMETHASONE [Suspect]
     Active Substance: DEXAMETHASONE
     Indication: Acute lymphocytic leukaemia
     Dosage: 10 MG/M2/DOSE, INTRAVENOUS OR ORAL IN 2 DIVIDED DOSES (BID), ON DAYS 1 TO 7 AND DAYS 15 TO 21

REACTIONS (1)
  - Pseudomonal sepsis [Fatal]
